FAERS Safety Report 15406114 (Version 2)
Quarter: 2019Q2

REPORT INFORMATION
  Report Type: Spontaneous
  Country: DE (occurrence: DE)
  Receive Date: 20180920
  Receipt Date: 20190415
  Transmission Date: 20190711
  Serious: Yes (Hospitalization, Other)
  Sender: FDA-Public Use
  Company Number: DE-AMGEN-DEUSP2018128635

PATIENT
  Age: 79 Year
  Sex: Female

DRUGS (11)
  1. PANTOZOL [ERYTHROMYCIN ETHYLSUCCINATE;SULFAFURAZOLE] [Concomitant]
     Dosage: 40 MILLIGRAM
  2. EXCIPIAL [PRUNUS DULCIS OIL] [Concomitant]
     Dosage: UNK UNK, QD
  3. DEKRISTOL [Concomitant]
     Active Substance: CHOLECALCIFEROL
     Dosage: 20000 INTERNATIONAL UNIT, Q2WK
  4. THESIT [LAURETH COMPOUNDS] [Concomitant]
     Indication: PRURITUS
     Dosage: UNK
  5. MAGNESIUM VERLA [MAGNESIUM GLUTAMATE] [Concomitant]
     Dosage: UNK UNK, QD
  6. PROLIA [Suspect]
     Active Substance: DENOSUMAB
     Indication: OSTEOPOROSIS
     Dosage: 60 MG, Q6MO
     Route: 065
     Dates: start: 2011, end: 2017
  7. CALCIUM [Concomitant]
     Active Substance: CALCIUM
     Dosage: UNK UNK, QD
  8. DECORTIN [Concomitant]
     Active Substance: PREDNISONE
     Dosage: 5 MILLIGRAM, QD
  9. PREDNISOLONE. [Concomitant]
     Active Substance: PREDNISOLONE
     Dosage: 35 MILLIGRAM
  10. KALINOR [POTASSIUM CHLORIDE] [Concomitant]
     Dosage: UNK UNK, QD
  11. FOLIC ACID. [Concomitant]
     Active Substance: FOLIC ACID
     Dosage: 7.5 MILLIGRAM

REACTIONS (1)
  - Dermatomyositis [Recovering/Resolving]

NARRATIVE: CASE EVENT DATE: 201710
